FAERS Safety Report 19541204 (Version 2)
Quarter: 2022Q2

REPORT INFORMATION
  Report Type: Spontaneous
  Country: US (occurrence: US)
  Receive Date: 20210713
  Receipt Date: 20220630
  Transmission Date: 20220720
  Serious: Yes (Other)
  Sender: FDA-Public Use
  Company Number: US-GW PHARMA-202107USGW03328

PATIENT
  Sex: Male

DRUGS (2)
  1. EPIDIOLEX [Suspect]
     Active Substance: CANNABIDIOL
     Indication: Lennox-Gastaut syndrome
     Dosage: 200 MILLIGRAM
     Route: 048
     Dates: start: 20210623
  2. EPIDIOLEX [Suspect]
     Active Substance: CANNABIDIOL
     Dosage: GIVE 1 ML BY MOUTH IN THE MORNING, 1.5 ML AT MIDDAY, AND 1.5 ML IN THE EVENING
     Route: 048
     Dates: start: 20210621

REACTIONS (11)
  - Seizure [Unknown]
  - Constipation [Unknown]
  - Abnormal faeces [Unknown]
  - Dyspepsia [Unknown]
  - Abdominal distension [Unknown]
  - Insomnia [Unknown]
  - Decreased appetite [Unknown]
  - Somnolence [Unknown]
  - Lethargy [Unknown]
  - Agitation [Unknown]
  - Pain [Unknown]

NARRATIVE: CASE EVENT DATE: 20210101
